FAERS Safety Report 5345751-X (Version None)
Quarter: 2007Q2

REPORT INFORMATION
  Report Type: 
  Country: None (occurrence: None)
  Receive Date: 20070601
  Receipt Date: 20070529
  Transmission Date: 20071010
  Serious: Yes (Hospitalization)
  Sender: FDA-Public Use
  Company Number: TCI2007A02425

PATIENT
  Sex: Female

DRUGS (1)
  1. LANSAP 400 (LANSOPRAZOLE, CLARITHROMYCIN, AMOXICILLIN) (PREPARATION FO [Suspect]
     Indication: HELICOBACTER INFECTION
     Dosage: 1 CARD (0.5 CARD, 2 IN 1 D); PER ORAL
     Route: 048

REACTIONS (1)
  - RENAL FAILURE ACUTE [None]
